FAERS Safety Report 23553505 (Version 4)
Quarter: 2024Q3

REPORT INFORMATION
  Report Type: Spontaneous
  Country: US (occurrence: US)
  Receive Date: 20240222
  Receipt Date: 20240711
  Transmission Date: 20241017
  Serious: Yes (Other)
  Sender: CSL BEHRING
  Company Number: US-BEH-2024168388

PATIENT
  Age: 65 Year
  Sex: Male

DRUGS (19)
  1. ZEMAIRA [Suspect]
     Active Substance: .ALPHA.1-PROTEINASE INHIBITOR HUMAN
     Indication: Nicotine dependence
     Dosage: 60 MILLIGRAM/KILOGRAM, QW
     Route: 042
  2. ZEMAIRA [Suspect]
     Active Substance: .ALPHA.1-PROTEINASE INHIBITOR HUMAN
     Dosage: UNK
     Route: 042
  3. ZEMAIRA [Suspect]
     Active Substance: .ALPHA.1-PROTEINASE INHIBITOR HUMAN
     Dosage: UNK
     Route: 042
  4. ASPIRIN [Concomitant]
     Active Substance: ASPIRIN
  5. AZELASTINE HYDROCHLORIDE [Concomitant]
     Active Substance: AZELASTINE HYDROCHLORIDE
  6. AZITHROMYCIN [Concomitant]
     Active Substance: AZITHROMYCIN
     Dosage: UNK, QD
  7. BREO ELLIPTA [Concomitant]
     Active Substance: FLUTICASONE FUROATE\VILANTEROL TRIFENATATE
  8. CLOTRIMAZOLE [Concomitant]
     Active Substance: CLOTRIMAZOLE
  9. DILTIAZEM HYDROCHLORIDE [Concomitant]
     Active Substance: DILTIAZEM HYDROCHLORIDE
  10. FLONASE ALLERGY RELIEF [Concomitant]
     Active Substance: FLUTICASONE PROPIONATE
  11. IPRATROPIUM [Concomitant]
     Active Substance: IPRATROPIUM
  12. LASIX [Concomitant]
     Active Substance: FUROSEMIDE
  13. LEVOTHYROXINE [Concomitant]
     Active Substance: LEVOTHYROXINE\LEVOTHYROXINE SODIUM
  14. LYRICA [Concomitant]
     Active Substance: PREGABALIN
  15. POTASSIUM CHLORIDE [Concomitant]
     Active Substance: POTASSIUM CHLORIDE
  16. PROVENTIL HFA [Concomitant]
     Active Substance: ALBUTEROL SULFATE
  17. ROSUVASTATIN [Concomitant]
     Active Substance: ROSUVASTATIN
  18. SPIRIVA RESPIMAT [Concomitant]
     Active Substance: TIOTROPIUM BROMIDE
  19. VITAMIN D3 [Concomitant]
     Active Substance: CHOLECALCIFEROL

REACTIONS (17)
  - Hypoxia [Unknown]
  - Feeling abnormal [Unknown]
  - Fatigue [Unknown]
  - Somnolence [Unknown]
  - Dyspnoea [Unknown]
  - Off label use [Unknown]
  - Sluggishness [Unknown]
  - Feeling abnormal [Unknown]
  - Oesophageal dilation procedure [Unknown]
  - Gait disturbance [Unknown]
  - Dyspnoea [Unknown]
  - COVID-19 [Not Recovered/Not Resolved]
  - Fatigue [Not Recovered/Not Resolved]
  - Cough [Not Recovered/Not Resolved]
  - Wheezing [Unknown]
  - Depression [Unknown]
  - Productive cough [Unknown]

NARRATIVE: CASE EVENT DATE: 20240305
